FAERS Safety Report 5218369-7 (Version None)
Quarter: 2007Q1

REPORT INFORMATION
  Report Type: 
  Country: None (occurrence: None)
  Receive Date: 20070123
  Receipt Date: 20070123
  Transmission Date: 20070707
  Serious: Yes (Hospitalization, Other)
  Sender: FDA-Public Use
  Company Number: None

PATIENT
  Age: 58 Year
  Sex: Female
  Weight: 58 kg

DRUGS (1)
  1. BENZOCAINE [Suspect]
     Indication: ANAESTHESIA
     Dates: start: 20060109, end: 20060109

REACTIONS (4)
  - CYANOSIS [None]
  - HEADACHE [None]
  - METHAEMOGLOBINAEMIA [None]
  - NAUSEA [None]
